FAERS Safety Report 5622056-0 (Version None)
Quarter: 2008Q1

REPORT INFORMATION
  Report Type: 
  Country: None (occurrence: None)
  Receive Date: 20080211
  Receipt Date: 20080204
  Transmission Date: 20080703
  Serious: Yes (Other)
  Sender: FDA-Public Use
  Company Number: JP-BRISTOL-MYERS SQUIBB COMPANY-14070080

PATIENT
  Age: 23 Year

DRUGS (2)
  1. GATIFLOXACIN [Suspect]
     Indication: URETHRITIS
     Route: 048
     Dates: start: 20080202, end: 20080202
  2. MUCOSTA [Concomitant]
     Route: 048
     Dates: start: 20080202, end: 20080202

REACTIONS (1)
  - ANAPHYLACTIC REACTION [None]
